FAERS Safety Report 20431045 (Version 1)
Quarter: 2022Q1

REPORT INFORMATION
  Report Type: Spontaneous
  Country: US (occurrence: None)
  Receive Date: 20220203
  Receipt Date: 20220203
  Transmission Date: 20220424
  Serious: Yes (Death)
  Sender: FDA-Public Use
  Company Number: None

PATIENT
  Age: 64 Year
  Sex: Male

DRUGS (1)
  1. EVEROLIMUS [Suspect]
     Active Substance: EVEROLIMUS
     Dosage: 5MG  DAILY ORAL??START DATE: 02/01/2022?
     Route: 048
     Dates: start: 2022

REACTIONS (2)
  - Disease progression [None]
  - Completed suicide [None]

NARRATIVE: CASE EVENT DATE: 20220126
